FAERS Safety Report 9900300 (Version 1)
Quarter: 2014Q1

REPORT INFORMATION
  Report Type: Spontaneous
  Country: US (occurrence: US)
  Receive Date: 20140216
  Receipt Date: 20140216
  Transmission Date: 20141002
  Serious: No
  Sender: FDA-Public Use
  Company Number: US-009507513-1402USA006756

PATIENT
  Age: 56 Year
  Sex: Female

DRUGS (1)
  1. NASONEX [Suspect]
     Dosage: 1 STANDARD DOSE OF 17, AS NEEDED
     Route: 045

REACTIONS (4)
  - Upper-airway cough syndrome [Not Recovered/Not Resolved]
  - Nasal congestion [Not Recovered/Not Resolved]
  - Drug dose omission [Unknown]
  - Product quality issue [Unknown]
